FAERS Safety Report 20215749 (Version 1)
Quarter: 2021Q4

REPORT INFORMATION
  Report Type: Spontaneous
  Country: SE (occurrence: SE)
  Receive Date: 20211222
  Receipt Date: 20211222
  Transmission Date: 20220303
  Serious: Yes (Death)
  Sender: FDA-Public Use
  Company Number: None

PATIENT
  Age: 71 Year
  Sex: Female
  Weight: 60 kg

DRUGS (10)
  1. PACLITAXEL [Suspect]
     Active Substance: PACLITAXEL
     Indication: Breast cancer
     Dosage: DOS 1,UNIT DOSE:126MILLIGRAM,FORM OF ADMIN:INFUSION LIQUID
     Route: 042
     Dates: start: 202110, end: 202110
  2. IMOVANE [Concomitant]
     Active Substance: ZOPICLONE
     Dosage: 5 MG 1-2 IF NEEDED
     Route: 048
  3. INDERAL [Concomitant]
     Active Substance: PROPRANOLOL HYDROCHLORIDE
     Dosage: 10 MG IF NEEDED
     Route: 048
  4. DETRUSITOL [Concomitant]
     Active Substance: TOLTERODINE TARTRATE
     Dosage: IRON IS STATED TO BE 5 MG, DOSAGE 1X1
     Route: 048
  5. ACETAMINOPHEN [Concomitant]
     Active Substance: ACETAMINOPHEN
     Dosage: 500 MG IF NEEDED
     Route: 048
  6. INDERAL [Concomitant]
     Active Substance: PROPRANOLOL HYDROCHLORIDE
     Dosage: 40 MILLIGRAM DAILY; 1X1
     Route: 048
  7. MIRTAZAPINE [Concomitant]
     Active Substance: MIRTAZAPINE
     Dosage: STRENGTH 30 MG, DOSE UNKNOWN
     Route: 048
  8. ALLEGRA [Concomitant]
     Active Substance: FEXOFENADINE HYDROCHLORIDE
     Dosage: 120 MILLIGRAM DAILY; 1X1
     Route: 048
  9. ESOMEPRAZOLE [Concomitant]
     Active Substance: ESOMEPRAZOLE
     Dosage: 20 MG, 2 PCS PER DAY,FORM OF ADMIN:TABLET / CAPSULE
     Route: 048
  10. ARCOXIA [Concomitant]
     Active Substance: ETORICOXIB
     Dosage: 30 MG 0 + 1
     Route: 048

REACTIONS (2)
  - Cardiac arrest [Fatal]
  - Hypersensitivity [Fatal]

NARRATIVE: CASE EVENT DATE: 20211001
